FAERS Safety Report 16028104 (Version 1)
Quarter: 2019Q1

REPORT INFORMATION
  Report Type: Spontaneous
  Country: IN (occurrence: IN)
  Receive Date: 20190304
  Receipt Date: 20190304
  Transmission Date: 20190418
  Serious: Yes (Hospitalization, Other)
  Sender: FDA-Public Use
  Company Number: IN-DRREDDYS-USA/IND/19/0108240

PATIENT
  Age: 69 Year
  Sex: Female

DRUGS (2)
  1. GEMCITABINE [Suspect]
     Active Substance: GEMCITABINE\GEMCITABINE HYDROCHLORIDE
     Indication: GALLBLADDER CANCER METASTATIC
     Dosage: ON D1 AND D8 OVER 30 MIN INFUSION REPEATED OVER EVERY 3 WEEKS FOR A TOTAL OF SIX CYCLES
     Route: 065
  2. CISPLATIN. [Concomitant]
     Active Substance: CISPLATIN
     Indication: PRODUCT USED FOR UNKNOWN INDICATION
     Dosage: ON D1 OVER 60 MIN INFUSION REPEATED OVER EVERY 3 WEEKS FOR A TOTAL OF SIX CYCLES
     Route: 065

REACTIONS (2)
  - Cardiotoxicity [Recovered/Resolved]
  - Supraventricular tachycardia [Recovered/Resolved]
